FAERS Safety Report 19842911 (Version 2)
Quarter: 2021Q3

REPORT INFORMATION
  Report Type: Report from Study
  Country: US (occurrence: US)
  Receive Date: 20210916
  Receipt Date: 20210922
  Transmission Date: 20211014
  Serious: No
  Sender: FDA-Public Use
  Company Number: US-ACADIA PHARMACEUTICALS INC.-ACA-2021-PIM-003087

PATIENT
  Age: 76 Year
  Sex: Male

DRUGS (7)
  1. ROPINIROLE. [Concomitant]
     Active Substance: ROPINIROLE
  2. NUPLAZID [Suspect]
     Active Substance: PIMAVANSERIN TARTRATE
     Indication: PARKINSON^S DISEASE
     Dosage: 44 MILLIGRAM, QD
     Route: 048
     Dates: start: 20180901
  3. SINEMET [Concomitant]
     Active Substance: CARBIDOPA\LEVODOPA
  4. NUPLAZID [Suspect]
     Active Substance: PIMAVANSERIN TARTRATE
     Indication: PARKINSON^S DISEASE
     Dosage: 44 MILLIGRAM, QD
     Route: 048
     Dates: start: 20180901
  5. GOCOVRI [Suspect]
     Active Substance: AMANTADINE
  6. SIMVASTATIN. [Concomitant]
     Active Substance: SIMVASTATIN
  7. OMEPRAZOLE. [Concomitant]
     Active Substance: OMEPRAZOLE

REACTIONS (3)
  - Hallucination [Unknown]
  - Fall [Unknown]
  - Overdose [Unknown]

NARRATIVE: CASE EVENT DATE: 20180901
